FAERS Safety Report 25389717 (Version 4)
Quarter: 2025Q3

REPORT INFORMATION
  Report Type: Spontaneous
  Country: EU (occurrence: EU)
  Receive Date: 20250603
  Receipt Date: 20250930
  Transmission Date: 20251021
  Serious: Yes (Other)
  Sender: MERCK SHARP & DOHME LLC
  Company Number: EU-009507513-2289975

PATIENT
  Age: 31 Year
  Sex: Female

DRUGS (3)
  1. PEMBROLIZUMAB [Suspect]
     Active Substance: PEMBROLIZUMAB
     Indication: Lung adenocarcinoma stage IV
     Dates: start: 202008, end: 202011
  2. CISPLATIN [Concomitant]
     Active Substance: CISPLATIN
     Indication: Lung adenocarcinoma stage IV
     Dates: start: 202008
  3. PEMETREXED [Concomitant]
     Active Substance: PEMETREXED
     Indication: Lung adenocarcinoma stage IV
     Dates: start: 202008

REACTIONS (2)
  - Immune-mediated vasculitis [Recovering/Resolving]
  - Hepatotoxicity [Unknown]

NARRATIVE: CASE EVENT DATE: 20200101
